FAERS Safety Report 8666205 (Version 3)
Quarter: 2013Q1

REPORT INFORMATION
  Report Type: Spontaneous
  Country: US (occurrence: US)
  Receive Date: 20120716
  Receipt Date: 20130228
  Transmission Date: 20140127
  Serious: Yes (Disabling, Other)
  Sender: FDA-Public Use
  Company Number: US-009507513-2012SP011818

PATIENT
  Sex: Female
  Weight: 90.7 kg

DRUGS (2)
  1. NUVARING [Suspect]
     Indication: CONTRACEPTION
     Dosage: UNK
     Route: 067
     Dates: start: 200810
  2. NUVARING [Suspect]
     Dosage: UNK
     Route: 067
     Dates: start: 20090212, end: 20090427

REACTIONS (14)
  - Multiple sclerosis [Unknown]
  - Cerebrovascular accident [Unknown]
  - Deep vein thrombosis [Unknown]
  - Neuropathy peripheral [Unknown]
  - Muscle spasms [Unknown]
  - Fatigue [Unknown]
  - Central nervous system inflammation [Unknown]
  - Radiculopathy [Unknown]
  - Hypothyroidism [Unknown]
  - Menstruation irregular [Unknown]
  - Haematuria [Unknown]
  - Vaginal haemorrhage [Unknown]
  - Dysmenorrhoea [Unknown]
  - Headache [Unknown]
